FAERS Safety Report 9960038 (Version 1)
Quarter: 2014Q1

REPORT INFORMATION
  Report Type: Report from Study
  Country: US (occurrence: US)
  Receive Date: 20140305
  Receipt Date: 20140305
  Transmission Date: 20141002
  Serious: No
  Sender: FDA-Public Use
  Company Number: US-ABBVIE-13P-163-1103177-00

PATIENT
  Sex: Female

DRUGS (3)
  1. HUMIRA [Suspect]
     Indication: RHEUMATOID ARTHRITIS
  2. HUMIRA [Suspect]
  3. MELOXICAM [Concomitant]
     Indication: PAIN
     Dosage: DAILY

REACTIONS (14)
  - Oropharyngeal pain [Unknown]
  - Unevaluable event [Unknown]
  - Feeling hot [Unknown]
  - Erythema [Unknown]
  - Inflammation [Unknown]
  - Feeling hot [Unknown]
  - Erythema [Unknown]
  - Inflammation [Unknown]
  - Feeling hot [Unknown]
  - Erythema [Unknown]
  - Inflammation [Unknown]
  - Muscle tightness [Unknown]
  - Device malfunction [Unknown]
  - Incorrect dose administered [Unknown]
